FAERS Safety Report 24940830 (Version 1)
Quarter: 2025Q1

REPORT INFORMATION
  Report Type: Report from Study
  Country: US (occurrence: US)
  Receive Date: 20250207
  Receipt Date: 20250207
  Transmission Date: 20250409
  Serious: Yes (Other)
  Sender: ACADIA PHARMACEUTICALS
  Company Number: US-ACADIA PHARMACEUTICALS INC.-ACA-2025-PIM-001161

PATIENT
  Age: 72 Year
  Sex: Male

DRUGS (1)
  1. NUPLAZID [Suspect]
     Active Substance: PIMAVANSERIN TARTRATE
     Indication: Parkinson^s disease psychosis
     Dosage: 34 MILLIGRAM, QD
     Route: 048

REACTIONS (8)
  - Parkinson^s disease [Unknown]
  - Dementia Alzheimer^s type [Unknown]
  - Vascular dementia [Unknown]
  - Loss of personal independence in daily activities [Unknown]
  - Infection [Unknown]
  - Urinary tract infection [Unknown]
  - Insomnia [Unknown]
  - Crying [Unknown]

NARRATIVE: CASE EVENT DATE: 20240901
